FAERS Safety Report 13741191 (Version 1)
Quarter: 2017Q3

REPORT INFORMATION
  Report Type: Spontaneous
  Country: PL (occurrence: PL)
  Receive Date: 20170711
  Receipt Date: 20170711
  Transmission Date: 20171127
  Serious: Yes (Other)
  Sender: FDA-Public Use
  Company Number: PL-BAXTER-2017BAX025406

PATIENT
  Age: 24 Day
  Weight: 3.02 kg

DRUGS (1)
  1. NATRIUM CHLORATUM 0,9% BAXTER [Suspect]
     Active Substance: SODIUM CHLORIDE
     Indication: FLUID REPLACEMENT
     Route: 042
     Dates: start: 20160505, end: 20160505

REACTIONS (4)
  - Bradycardia neonatal [Unknown]
  - Hyperbilirubinaemia neonatal [Unknown]
  - Respiration abnormal [Unknown]
  - Cyanosis neonatal [Unknown]

NARRATIVE: CASE EVENT DATE: 20160505
